FAERS Safety Report 5887769-4 (Version None)
Quarter: 2008Q3

REPORT INFORMATION
  Report Type: 
  Country: None (occurrence: None)
  Receive Date: 20080916
  Receipt Date: 20080916
  Transmission Date: 20090109
  Serious: Yes (Hospitalization)
  Sender: FDA-Public Use
  Company Number: None

PATIENT
  Age: 70 Year
  Sex: Female

DRUGS (6)
  1. WARFARIN SODIUM [Suspect]
     Indication: DEEP VEIN THROMBOSIS
     Dosage: 5MG ALT 7.5MG M-F, S/SUN PO CHRONIC
     Route: 048
  2. KLONOPIN [Concomitant]
  3. LEXAPRO [Concomitant]
  4. PERCODAN-DEMI [Concomitant]
  5. SYNTHROID [Concomitant]
  6. LEUCOCYTE [Concomitant]

REACTIONS (2)
  - INTERNATIONAL NORMALISED RATIO INCREASED [None]
  - UPPER GASTROINTESTINAL HAEMORRHAGE [None]
